FAERS Safety Report 5988732-5 (Version None)
Quarter: 2008Q4

REPORT INFORMATION
  Report Type: 
  Country: None (occurrence: None)
  Receive Date: 20081210
  Receipt Date: 20081202
  Transmission Date: 20090506
  Serious: Yes (Other)
  Sender: FDA-Public Use
  Company Number: PHHY2008BR30724

PATIENT
  Age: 62 Year
  Sex: Male
  Weight: 98 kg

DRUGS (2)
  1. FORADIL / FOR 258A / CGP 25827 [Suspect]
     Indication: ALLERGIC COUGH
     Dosage: 12 UG, UNK
  2. FORADIL / FOR 258A / CGP 25827 [Suspect]
     Dosage: 12 UG, UNK
     Dates: start: 20081118

REACTIONS (3)
  - ALLERGIC COUGH [None]
  - COUGH [None]
  - RHINITIS ALLERGIC [None]
